FAERS Safety Report 7514720-3 (Version None)
Quarter: 2011Q2

REPORT INFORMATION
  Report Type: 
  Country: None (occurrence: None)
  Receive Date: 20110601
  Receipt Date: 20110421
  Transmission Date: 20111010
  Serious: Yes (Hospitalization, Other)
  Sender: FDA-Public Use
  Company Number: US-BAYER-2010-004375

PATIENT
  Age: 27 Year
  Sex: Female
  Weight: 146.3 kg

DRUGS (43)
  1. NAPROXEN SODIUM [Concomitant]
     Dosage: UNK
     Dates: start: 20090430
  2. AMOXICILLIN [Concomitant]
     Dosage: UNK
     Dates: start: 20100111
  3. ZOLPIDEM [Concomitant]
     Dosage: UNK
     Dates: start: 20091106, end: 20091206
  4. LEVSIN [Concomitant]
  5. LORTAB [Concomitant]
  6. CEPHADYN [Concomitant]
     Dosage: 50 MG, UNK
     Route: 048
  7. FLEXERIL [Concomitant]
     Dosage: 10 MG, UNK
     Route: 048
  8. YASMIN [Suspect]
     Indication: ORAL CONTRACEPTION
     Dosage: UNK
     Dates: start: 20060614, end: 20060714
  9. PENICILLIN [Concomitant]
     Dosage: UNK
     Dates: start: 20060714, end: 20060718
  10. FERROUS SULFATE TAB [Concomitant]
     Dosage: UNK
     Dates: start: 20090430, end: 20090530
  11. FEMCOM [Concomitant]
     Dosage: UNK
     Dates: start: 20090612, end: 20090707
  12. ZOFRAN [Concomitant]
  13. MAXALT [Concomitant]
     Dosage: 10 MG, UNK
     Route: 048
  14. HYDROCODONE BITARTRATE AND ACETAMINOPHEN [Concomitant]
  15. HYDROXYZINE HYDROCHLORIDE [Concomitant]
     Dosage: UNK
     Dates: start: 20081206
  16. AMOXICILLIN [Concomitant]
     Dosage: UNK
     Dates: start: 20091106, end: 20091115
  17. ROBINUL [Concomitant]
  18. TESSALON [Concomitant]
     Dosage: 100 MG, UNK
     Route: 048
  19. DARVOCET [Concomitant]
  20. NORETHINDRONE [Concomitant]
  21. CYCLOBENZAPRINE [Concomitant]
  22. PROMETHAZINE [Concomitant]
  23. VERSED [Concomitant]
  24. DROSPIRENONE AND ETHINYL ESTRADIOL [Suspect]
     Indication: MENSTRUATION IRREGULAR
     Dosage: UNK
     Dates: start: 20090707, end: 20100201
  25. METFORMIN HCL [Concomitant]
  26. FLUCONAZOLE [Concomitant]
     Dosage: UNK
     Dates: start: 20060721
  27. PRENATAL PLUS IRON [Concomitant]
  28. METHYLPREDNISOLONE [Concomitant]
  29. AMBIEN [Concomitant]
     Dosage: 10 MG, UNK
     Route: 048
  30. YASMIN [Suspect]
     Dosage: UNK
     Dates: start: 20090701, end: 20100201
  31. NITROFURANTOIN [Concomitant]
     Dosage: 100 MG, QD
  32. DESOXIMETASONE [Concomitant]
     Dosage: UNK
     Dates: start: 20090216
  33. COUGH AND COLD PREPARATIONS [Concomitant]
  34. PROCHLORPERAZINE TAB [Concomitant]
  35. BUPIVACAINE HCL [Concomitant]
  36. KEFZOL [Concomitant]
  37. MORPHINE [Concomitant]
  38. KLOR-CON [Concomitant]
     Dosage: 10 MEQ, QD
  39. OXYCODONE HCL AND ACETAMINOPHEN [Concomitant]
     Dosage: UNK
     Dates: start: 20090622
  40. MAXALT [Concomitant]
  41. DEMEROL [Concomitant]
  42. PHENERGAN HCL [Concomitant]
  43. REGLAN [Concomitant]

REACTIONS (6)
  - CHOLELITHIASIS [None]
  - GALLBLADDER DISORDER [None]
  - PAIN [None]
  - INJURY [None]
  - GALLBLADDER NON-FUNCTIONING [None]
  - CHOLECYSTITIS CHRONIC [None]
